FAERS Safety Report 11162562 (Version 1)
Quarter: 2015Q2

REPORT INFORMATION
  Report Type: Spontaneous
  Country: TW (occurrence: None)
  Receive Date: 20150602
  Receipt Date: 20150602
  Transmission Date: 20150821
  Serious: Yes (Death, Hospitalization)
  Sender: FDA-Public Use
  Company Number: FK201502484

PATIENT
  Age: 48 Year
  Sex: Male

DRUGS (1)
  1. METHOTREXATE (MANUFACTURER UNKNOWN) (METHOTREXATE) (METHOTREXATE) [Suspect]
     Active Substance: METHOTREXATE
     Indication: PSORIASIS

REACTIONS (16)
  - Ventricular arrhythmia [None]
  - Erythema [None]
  - Renal failure [None]
  - Hypotension [None]
  - Pruritus generalised [None]
  - Diarrhoea [None]
  - Toxicity to various agents [None]
  - Hypoalbuminaemia [None]
  - Pancytopenia [None]
  - Continuous haemodiafiltration [None]
  - Acute myocardial infarction [None]
  - Mouth ulceration [None]
  - Leukopenia [None]
  - Shock [None]
  - Tachycardia [None]
  - Pseudomonas infection [None]
